FAERS Safety Report 24995615 (Version 10)
Quarter: 2025Q2

REPORT INFORMATION
  Report Type: Report from Study
  Country: BR (occurrence: BR)
  Receive Date: 20250221
  Receipt Date: 20250522
  Transmission Date: 20250717
  Serious: Yes (Other)
  Sender: SANDOZ
  Company Number: BR-SANDOZ-SDZ2024BR071687

PATIENT
  Sex: Female
  Weight: 46 kg

DRUGS (11)
  1. OMNITROPE [Suspect]
     Active Substance: SOMATROPIN
     Route: 065
  2. OMNITROPE [Suspect]
     Active Substance: SOMATROPIN
     Route: 065
  3. OMNITROPE [Suspect]
     Active Substance: SOMATROPIN
     Route: 058
  4. OMNITROPE [Suspect]
     Active Substance: SOMATROPIN
     Route: 058
  5. OMNITROPE [Suspect]
     Active Substance: SOMATROPIN
     Route: 065
  6. OMNITROPE [Suspect]
     Active Substance: SOMATROPIN
     Route: 065
  7. OMNITROPE [Suspect]
     Active Substance: SOMATROPIN
     Route: 065
  8. OMNITROPE [Suspect]
     Active Substance: SOMATROPIN
     Indication: Blood growth hormone
     Route: 065
  9. OMNITROPE [Suspect]
     Active Substance: SOMATROPIN
     Dosage: 3 MG, QD (STRENGTH-15 MG / 1.5 ML)
     Route: 058
  10. OMNITROPE [Suspect]
     Active Substance: SOMATROPIN
     Route: 065
     Dates: start: 202408, end: 202412
  11. OMNITROPE [Suspect]
     Active Substance: SOMATROPIN
     Indication: Growth retardation
     Route: 058
     Dates: start: 20221215

REACTIONS (6)
  - Growth retardation [Unknown]
  - Injection site pain [Unknown]
  - Drug ineffective [Unknown]
  - Incorrect dose administered [Unknown]
  - Product availability issue [Unknown]
  - Device use issue [Unknown]

NARRATIVE: CASE EVENT DATE: 20240101
